FAERS Safety Report 5750515-9 (Version None)
Quarter: 2008Q2

REPORT INFORMATION
  Report Type: 
  Country: None (occurrence: None)
  Receive Date: 20080528
  Receipt Date: 20080521
  Transmission Date: 20081010
  Serious: Yes (Life-Threatening, Hospitalization)
  Sender: FDA-Public Use
  Company Number: FR-WYE-G01013108

PATIENT
  Sex: Female
  Weight: 8 kg

DRUGS (5)
  1. ADVIL [Suspect]
     Indication: PYREXIA
     Dosage: 22.5 MG PER KG PER DAY
     Route: 048
     Dates: start: 20071218, end: 20071227
  2. ZITHROMAX [Suspect]
     Route: 048
     Dates: start: 20071226, end: 20071227
  3. PREVENAR [Concomitant]
     Indication: IMMUNISATION
     Dates: start: 20070726, end: 20070726
  4. DOLIPRANE [Suspect]
     Indication: PYREXIA
     Dosage: 60 MG PER KG PER DAY
     Route: 048
     Dates: start: 20071218, end: 20071227
  5. AMOXICILLIN [Suspect]
     Indication: EAR INFECTION
     Dosage: 150 MG PER KILOGRAM
     Route: 048
     Dates: start: 20071218, end: 20071227

REACTIONS (14)
  - AGITATION [None]
  - BRONCHIAL DISORDER [None]
  - CEREBRAL VENTRICLE DILATATION [None]
  - CONDITION AGGRAVATED [None]
  - GENERAL PHYSICAL HEALTH DETERIORATION [None]
  - HAEMOGLOBIN DECREASED [None]
  - HEPATOMEGALY [None]
  - MEAN CELL VOLUME DECREASED [None]
  - MENINGITIS PNEUMOCOCCAL [None]
  - PLATELET COUNT INCREASED [None]
  - PNEUMOCOCCAL SEPSIS [None]
  - PYREXIA [None]
  - SOMNOLENCE [None]
  - TACHYCARDIA [None]
